FAERS Safety Report 8280751-1 (Version None)
Quarter: 2012Q2

REPORT INFORMATION
  Report Type: 
  Country: None (occurrence: None)
  Receive Date: 20120412
  Receipt Date: 20120404
  Transmission Date: 20120825
  Serious: Yes (Other)
  Sender: FDA-Public Use
  Company Number: PR-ABBOTT-12P-131-0921456-00

PATIENT
  Sex: Female
  Weight: 63.56 kg

DRUGS (6)
  1. PROVENTIL [Concomitant]
     Dosage: THERAPY
     Route: 048
     Dates: start: 20070101
  2. METHOTREXATE [Concomitant]
     Indication: RHEUMATOID ARTHRITIS
     Route: 048
     Dates: start: 20111201
  3. FOLIC ACID [Concomitant]
     Indication: RHEUMATOID ARTHRITIS
     Route: 048
     Dates: start: 20111201
  4. MAXALT [Concomitant]
     Indication: MIGRAINE
     Route: 048
  5. HUMIRA [Suspect]
     Indication: RHEUMATOID ARTHRITIS
     Route: 058
     Dates: start: 20111201, end: 20120308
  6. PROVENTIL [Concomitant]
     Indication: ASTHMA
     Dosage: PRN, PUMP
     Route: 048
     Dates: start: 20070101

REACTIONS (1)
  - BREAST CALCIFICATIONS [None]
